FAERS Safety Report 4974825-8 (Version None)
Quarter: 2006Q1

REPORT INFORMATION
  Report Type: 
  Country: None (occurrence: None)
  Receive Date: 20060216
  Receipt Date: 20050713
  Transmission Date: 20060701
  Serious: Yes (Hospitalization)
  Sender: FDA-Public Use
  Company Number: 200507IM000299

PATIENT
  Age: 69 Year
  Sex: Female
  Weight: 65.5 kg

DRUGS (5)
  1. INTERFERON GAMMA-1B [Suspect]
     Indication: IDIOPATHIC PULMONARY FIBROSIS
     Dosage: 200 UG, TIW, SUBCUTANEOUS
     Route: 058
     Dates: start: 20031202, end: 20050609
  2. INTERFERON GAMMA-1B [Suspect]
     Indication: IDIOPATHIC PULMONARY FIBROSIS
     Dosage: 200 UG, TIW, SUBCUTANEOUS
     Route: 058
     Dates: start: 20050628
  3. LIPITOR [Concomitant]
  4. TRAZODONE HCL [Concomitant]
  5. EXTRA STRENGTH TYLENOL [Concomitant]

REACTIONS (1)
  - PYELONEPHRITIS ACUTE [None]
